FAERS Safety Report 7224575-2 (Version None)
Quarter: 2011Q1

REPORT INFORMATION
  Report Type: 
  Country: None (occurrence: None)
  Receive Date: 20110113
  Receipt Date: 20110104
  Transmission Date: 20110831
  Serious: Yes (Hospitalization, Other)
  Sender: FDA-Public Use
  Company Number: US-NOVOPROD-321063

PATIENT
  Age: 47 Year
  Sex: Male
  Weight: 104.31 kg

DRUGS (10)
  1. VICTOZA [Suspect]
     Indication: TYPE 2 DIABETES MELLITUS
     Dosage: 0.6 MG, QD
     Route: 058
     Dates: start: 20101101, end: 20100101
  2. METFORMIN [Concomitant]
     Indication: TYPE 2 DIABETES MELLITUS
     Dosage: UNK
  3. GLIPIZIDE [Concomitant]
     Indication: TYPE 2 DIABETES MELLITUS
  4. LISINOPRIL [Concomitant]
     Indication: PRODUCT USED FOR UNKNOWN INDICATION
     Dosage: UNK
     Dates: end: 20101201
  5. ASPIRIN [Concomitant]
     Indication: PRODUCT USED FOR UNKNOWN INDICATION
     Dosage: UNK
     Dates: end: 20101201
  6. VICTOZA [Suspect]
     Dosage: 0.6 MG, QD
     Route: 058
     Dates: start: 20100101, end: 20100101
  7. VICTOZA [Suspect]
     Dosage: 1.0 MG, QD
     Route: 058
     Dates: start: 20100101, end: 20101201
  8. PRAVASTATIN [Concomitant]
     Indication: PRODUCT USED FOR UNKNOWN INDICATION
     Dosage: UNK
  9. VICTOZA [Suspect]
     Dosage: 1.2 MG, QD
     Route: 058
     Dates: start: 20100101, end: 20100101
  10. ALLEGRA [Concomitant]
     Indication: HYPERSENSITIVITY
     Dosage: UNK

REACTIONS (4)
  - WEIGHT DECREASED [None]
  - PANCREATITIS [None]
  - BLOOD PRESSURE INCREASED [None]
  - BLOOD GLUCOSE INCREASED [None]
